FAERS Safety Report 24275539 (Version 2)
Quarter: 2024Q3

REPORT INFORMATION
  Report Type: Spontaneous
  Country: GB (occurrence: GB)
  Receive Date: 20240903
  Receipt Date: 20240909
  Transmission Date: 20241016
  Serious: Yes (Hospitalization, Other)
  Sender: SANDOZ
  Company Number: None

PATIENT
  Age: 61 Year
  Sex: Female

DRUGS (2)
  1. ATORVASTATIN [Suspect]
     Active Substance: ATORVASTATIN
     Dosage: 40 MG, QD
     Route: 065
     Dates: start: 2018, end: 201812
  2. ATORVASTATIN [Suspect]
     Active Substance: ATORVASTATIN
     Indication: Type IIa hyperlipidaemia
     Dosage: UNK
     Route: 065

REACTIONS (5)
  - Autoimmune hepatitis [Recovered/Resolved]
  - Autoimmune disorder [Recovered/Resolved]
  - Disease progression [Unknown]
  - Toxicity to various agents [Unknown]
  - Drug-induced liver injury [Recovering/Resolving]

NARRATIVE: CASE EVENT DATE: 20180101
